FAERS Safety Report 12743956 (Version 1)
Quarter: 2016Q3

REPORT INFORMATION
  Report Type: Report from Study
  Country: US (occurrence: US)
  Receive Date: 20160914
  Receipt Date: 20160914
  Transmission Date: 20161109
  Serious: Yes (Other)
  Sender: FDA-Public Use
  Company Number: US-MALLINCKRODT-T201604276

PATIENT
  Age: 68 Year
  Sex: Male

DRUGS (4)
  1. LASIX [Concomitant]
     Active Substance: FUROSEMIDE
     Indication: FLUID RETENTION
     Dosage: 40MG, UNK
  2. REPOSITORY CORTICOTROPIN INJECTION [Suspect]
     Active Substance: CORTICOTROPIN
     Indication: PROTEINURIA
     Dosage: 40UNITS/.5ML  EVERY 3 DAYS
     Route: 058
     Dates: start: 20160824
  3. LASIX [Concomitant]
     Active Substance: FUROSEMIDE
     Dosage: 80MG, UNK
  4. REPOSITORY CORTICOTROPIN INJECTION [Suspect]
     Active Substance: CORTICOTROPIN
     Indication: NEPHROTIC SYNDROME

REACTIONS (3)
  - Weight increased [Recovering/Resolving]
  - Drug administration error [Unknown]
  - Fluid retention [Recovering/Resolving]

NARRATIVE: CASE EVENT DATE: 20160828
